FAERS Safety Report 22207501 (Version 2)
Quarter: 2023Q4

REPORT INFORMATION
  Report Type: Spontaneous
  Country: US (occurrence: US)
  Receive Date: 20230413
  Receipt Date: 20231214
  Transmission Date: 20240110
  Serious: No
  Sender: FDA-Public Use
  Company Number: US-FreseniusKabi-FK202304161

PATIENT
  Age: 82 Year
  Sex: Female

DRUGS (1)
  1. POTASSIUM [Suspect]
     Active Substance: POTASSIUM
     Indication: Blood potassium decreased
     Dosage: UNK
     Route: 042

REACTIONS (1)
  - Infusion site pain [Unknown]
